FAERS Safety Report 8369105-7 (Version None)
Quarter: 2012Q2

REPORT INFORMATION
  Report Type: 
  Country: None (occurrence: None)
  Receive Date: 20120516
  Receipt Date: 20120516
  Transmission Date: 20120825
  Serious: Yes (Other)
  Sender: FDA-Public Use
  Company Number: None

PATIENT
  Sex: Male
  Weight: 60.3 kg

DRUGS (1)
  1. OFIRMEV [Suspect]
     Indication: PROCEDURAL PAIN
     Dosage: 1000 MG ONCE IV
     Route: 042
     Dates: start: 20120514, end: 20120514

REACTIONS (3)
  - INFUSION RELATED REACTION [None]
  - HYPERSENSITIVITY [None]
  - ERYTHEMA [None]
